FAERS Safety Report 9996842 (Version 2)
Quarter: 2015Q1

REPORT INFORMATION
  Report Type: Spontaneous
  Country: US (occurrence: US)
  Receive Date: 20140311
  Receipt Date: 20150313
  Transmission Date: 20150721
  Serious: No
  Sender: FDA-Public Use
  Company Number: US-GLAXOSMITHKLINE-A1031048A

PATIENT
  Age: 31 Year
  Sex: Male

DRUGS (2)
  1. NICORETTE CINNAMON SURGE [Suspect]
     Active Substance: NICOTINE
     Dosage: UNK
     Dates: start: 201409
  2. NICORETTE CINNAMON SURGE [Suspect]
     Active Substance: NICOTINE
     Indication: EX-TOBACCO USER
     Dosage: 4 MG, UNK
     Dates: end: 20130705

REACTIONS (4)
  - Nicotine dependence [Recovered/Resolved]
  - Intentional product use issue [Recovered/Resolved]
  - Alopecia [Recovered/Resolved]
  - Burning sensation [Recovered/Resolved]
